FAERS Safety Report 10202505 (Version 1)
Quarter: 2014Q2

REPORT INFORMATION
  Report Type: Spontaneous
  Country: CN (occurrence: CN)
  Receive Date: 20140528
  Receipt Date: 20140528
  Transmission Date: 20141212
  Serious: Yes (Other)
  Sender: FDA-Public Use
  Company Number: CN-ASTRAZENECA-2014SE35553

PATIENT
  Age: 15695 Day
  Sex: Female

DRUGS (1)
  1. ROPIVACAINE HYDROCHLORIDE [Suspect]
     Indication: NERVE BLOCK
     Route: 065
     Dates: start: 20130418, end: 20130418

REACTIONS (5)
  - Tachypnoea [Recovered/Resolved]
  - Asthenia [Recovered/Resolved]
  - Mental disorder [Recovered/Resolved]
  - Apathy [Recovered/Resolved]
  - Dysphoria [Unknown]
